FAERS Safety Report 6826209-5 (Version None)
Quarter: 2010Q3

REPORT INFORMATION
  Report Type: 
  Country: None (occurrence: None)
  Receive Date: 20100709
  Receipt Date: 20100624
  Transmission Date: 20110219
  Serious: Yes (Hospitalization)
  Sender: FDA-Public Use
  Company Number: PHHY2010FR41863

PATIENT
  Sex: Female

DRUGS (3)
  1. CGP 57148B T35717+ [Suspect]
     Indication: GASTROINTESTINAL STROMAL TUMOUR
     Dosage: 400 MG
     Route: 048
     Dates: start: 20050901
  2. CGP 57148B T35717+ [Suspect]
     Dosage: 800 MG
     Route: 048
     Dates: start: 20071001, end: 20081001
  3. CGP 57148B T35717+ [Suspect]
     Dosage: 600 MG
     Route: 048
     Dates: start: 20090201

REACTIONS (13)
  - ABDOMINAL PAIN [None]
  - ABDOMINAL PAIN LOWER [None]
  - CENTRAL VENOUS CATHETERISATION [None]
  - CONSTIPATION [None]
  - DIARRHOEA [None]
  - GENERAL PHYSICAL HEALTH DETERIORATION [None]
  - HYPERMETABOLISM [None]
  - MALNUTRITION [None]
  - MASS [None]
  - NEOPLASM MALIGNANT [None]
  - NEOPLASM RECURRENCE [None]
  - PAIN [None]
  - POLYNEUROPATHY [None]
